FAERS Safety Report 25492960 (Version 1)
Quarter: 2025Q2

REPORT INFORMATION
  Report Type: Spontaneous
  Country: US (occurrence: US)
  Receive Date: 20250630
  Receipt Date: 20250630
  Transmission Date: 20250716
  Serious: No
  Sender: UCB
  Company Number: US-UCBSA-2024058153

PATIENT
  Age: 58 Year
  Sex: Male

DRUGS (81)
  1. MIDAZOLAM [Suspect]
     Active Substance: MIDAZOLAM
     Indication: Hypotension
  2. MIDAZOLAM [Suspect]
     Active Substance: MIDAZOLAM
     Indication: Positive end-expiratory pressure
  3. MIDAZOLAM [Suspect]
     Active Substance: MIDAZOLAM
     Indication: Flushing
  4. MIDAZOLAM [Suspect]
     Active Substance: MIDAZOLAM
     Indication: Angioedema
  5. MIDAZOLAM [Suspect]
     Active Substance: MIDAZOLAM
     Indication: Cyanosis
  6. MIDAZOLAM [Suspect]
     Active Substance: MIDAZOLAM
     Indication: Off label use
  7. EPINEPHRINE [Concomitant]
     Active Substance: EPINEPHRINE
     Indication: Hypotension
  8. EPINEPHRINE [Concomitant]
     Active Substance: EPINEPHRINE
     Indication: Positive end-expiratory pressure
  9. EPINEPHRINE [Concomitant]
     Active Substance: EPINEPHRINE
     Indication: Flushing
  10. EPINEPHRINE [Concomitant]
     Active Substance: EPINEPHRINE
     Indication: Angioedema
  11. EPINEPHRINE [Concomitant]
     Active Substance: EPINEPHRINE
     Indication: Cyanosis
  12. NOREPINEPHRINE [Concomitant]
     Active Substance: NOREPINEPHRINE
     Indication: Hypotension
  13. NOREPINEPHRINE [Concomitant]
     Active Substance: NOREPINEPHRINE
     Indication: Positive end-expiratory pressure
  14. NOREPINEPHRINE [Concomitant]
     Active Substance: NOREPINEPHRINE
     Indication: Flushing
  15. NOREPINEPHRINE [Concomitant]
     Active Substance: NOREPINEPHRINE
     Indication: Angioedema
  16. NOREPINEPHRINE [Concomitant]
     Active Substance: NOREPINEPHRINE
     Indication: Cyanosis
  17. VASOPRESSIN [Concomitant]
     Active Substance: VASOPRESSIN
     Indication: Hypotension
  18. VASOPRESSIN [Concomitant]
     Active Substance: VASOPRESSIN
     Indication: Positive end-expiratory pressure
  19. VASOPRESSIN [Concomitant]
     Active Substance: VASOPRESSIN
     Indication: Flushing
  20. VASOPRESSIN [Concomitant]
     Active Substance: VASOPRESSIN
     Indication: Angioedema
  21. VASOPRESSIN [Concomitant]
     Active Substance: VASOPRESSIN
     Indication: Cyanosis
  22. EPHEDRINE [Concomitant]
     Active Substance: EPHEDRINE
     Indication: Hypotension
  23. EPHEDRINE [Concomitant]
     Active Substance: EPHEDRINE
     Indication: Positive end-expiratory pressure
  24. EPHEDRINE [Concomitant]
     Active Substance: EPHEDRINE
     Indication: Flushing
  25. EPHEDRINE [Concomitant]
     Active Substance: EPHEDRINE
     Indication: Angioedema
  26. EPHEDRINE [Concomitant]
     Active Substance: EPHEDRINE
     Indication: Cyanosis
  27. PHENYLEPHRINE [Concomitant]
     Active Substance: PHENYLEPHRINE
     Indication: Hypotension
  28. PHENYLEPHRINE [Concomitant]
     Active Substance: PHENYLEPHRINE
     Indication: Positive end-expiratory pressure
  29. PHENYLEPHRINE [Concomitant]
     Active Substance: PHENYLEPHRINE
     Indication: Flushing
  30. PHENYLEPHRINE [Concomitant]
     Active Substance: PHENYLEPHRINE
     Indication: Angioedema
  31. PHENYLEPHRINE [Concomitant]
     Active Substance: PHENYLEPHRINE
     Indication: Cyanosis
  32. ALBUTEROL SULFATE [Concomitant]
     Active Substance: ALBUTEROL SULFATE
     Indication: Hypotension
  33. ALBUTEROL SULFATE [Concomitant]
     Active Substance: ALBUTEROL SULFATE
     Indication: Positive end-expiratory pressure
  34. ALBUTEROL SULFATE [Concomitant]
     Active Substance: ALBUTEROL SULFATE
     Indication: Flushing
  35. ALBUTEROL SULFATE [Concomitant]
     Active Substance: ALBUTEROL SULFATE
     Indication: Angioedema
  36. ALBUTEROL SULFATE [Concomitant]
     Active Substance: ALBUTEROL SULFATE
     Indication: Cyanosis
  37. DEXAMETHASONE [Concomitant]
     Active Substance: DEXAMETHASONE
     Indication: Hypotension
  38. DEXAMETHASONE [Concomitant]
     Active Substance: DEXAMETHASONE
     Indication: Positive end-expiratory pressure
  39. DEXAMETHASONE [Concomitant]
     Active Substance: DEXAMETHASONE
     Indication: Flushing
  40. DEXAMETHASONE [Concomitant]
     Active Substance: DEXAMETHASONE
     Indication: Angioedema
  41. DEXAMETHASONE [Concomitant]
     Active Substance: DEXAMETHASONE
     Indication: Cyanosis
  42. HYDROCORTISONE [Concomitant]
     Active Substance: HYDROCORTISONE
     Indication: Hypotension
  43. HYDROCORTISONE [Concomitant]
     Active Substance: HYDROCORTISONE
     Indication: Positive end-expiratory pressure
  44. HYDROCORTISONE [Concomitant]
     Active Substance: HYDROCORTISONE
     Indication: Flushing
  45. HYDROCORTISONE [Concomitant]
     Active Substance: HYDROCORTISONE
     Indication: Angioedema
  46. HYDROCORTISONE [Concomitant]
     Active Substance: HYDROCORTISONE
     Indication: Cyanosis
  47. DIPHENHYDRAMINE [Concomitant]
     Active Substance: DIPHENHYDRAMINE
     Indication: Hypotension
  48. DIPHENHYDRAMINE [Concomitant]
     Active Substance: DIPHENHYDRAMINE
     Indication: Positive end-expiratory pressure
  49. DIPHENHYDRAMINE [Concomitant]
     Active Substance: DIPHENHYDRAMINE
     Indication: Flushing
  50. DIPHENHYDRAMINE [Concomitant]
     Active Substance: DIPHENHYDRAMINE
     Indication: Angioedema
  51. DIPHENHYDRAMINE [Concomitant]
     Active Substance: DIPHENHYDRAMINE
     Indication: Cyanosis
  52. FAMOTIDINE [Concomitant]
     Active Substance: FAMOTIDINE
     Indication: Hypotension
  53. FAMOTIDINE [Concomitant]
     Active Substance: FAMOTIDINE
     Indication: Positive end-expiratory pressure
  54. FAMOTIDINE [Concomitant]
     Active Substance: FAMOTIDINE
     Indication: Flushing
  55. FAMOTIDINE [Concomitant]
     Active Substance: FAMOTIDINE
     Indication: Angioedema
  56. FAMOTIDINE [Concomitant]
     Active Substance: FAMOTIDINE
     Indication: Cyanosis
  57. HYDROMORPHONE [Concomitant]
     Active Substance: HYDROMORPHONE
     Indication: Hypotension
  58. HYDROMORPHONE [Concomitant]
     Active Substance: HYDROMORPHONE
     Indication: Positive end-expiratory pressure
  59. HYDROMORPHONE [Concomitant]
     Active Substance: HYDROMORPHONE
     Indication: Flushing
  60. HYDROMORPHONE [Concomitant]
     Active Substance: HYDROMORPHONE
     Indication: Angioedema
  61. HYDROMORPHONE [Concomitant]
     Active Substance: HYDROMORPHONE
     Indication: Cyanosis
  62. KETAMINE [Concomitant]
     Active Substance: KETAMINE
     Indication: Hypotension
  63. KETAMINE [Concomitant]
     Active Substance: KETAMINE
     Indication: Positive end-expiratory pressure
  64. KETAMINE [Concomitant]
     Active Substance: KETAMINE
     Indication: Flushing
  65. KETAMINE [Concomitant]
     Active Substance: KETAMINE
     Indication: Angioedema
  66. KETAMINE [Concomitant]
     Active Substance: KETAMINE
     Indication: Cyanosis
  67. PROPOFOL [Concomitant]
     Active Substance: PROPOFOL
     Indication: Hypotension
  68. PROPOFOL [Concomitant]
     Active Substance: PROPOFOL
     Indication: Positive end-expiratory pressure
  69. PROPOFOL [Concomitant]
     Active Substance: PROPOFOL
     Indication: Flushing
  70. PROPOFOL [Concomitant]
     Active Substance: PROPOFOL
     Indication: Angioedema
  71. PROPOFOL [Concomitant]
     Active Substance: PROPOFOL
     Indication: Cyanosis
  72. CARBOXYMETHYLCELLULOSE [Concomitant]
     Active Substance: CARBOXYMETHYLCELLULOSE
     Indication: Hypotension
     Route: 047
  73. CARBOXYMETHYLCELLULOSE [Concomitant]
     Active Substance: CARBOXYMETHYLCELLULOSE
     Indication: Positive end-expiratory pressure
  74. CARBOXYMETHYLCELLULOSE [Concomitant]
     Active Substance: CARBOXYMETHYLCELLULOSE
     Indication: Flushing
  75. CARBOXYMETHYLCELLULOSE [Concomitant]
     Active Substance: CARBOXYMETHYLCELLULOSE
     Indication: Angioedema
  76. CARBOXYMETHYLCELLULOSE [Concomitant]
     Active Substance: CARBOXYMETHYLCELLULOSE
     Indication: Cyanosis
  77. ROCURONIUM [Concomitant]
     Active Substance: ROCURONIUM BROMIDE
     Indication: Hypotension
  78. ROCURONIUM [Concomitant]
     Active Substance: ROCURONIUM BROMIDE
     Indication: Positive end-expiratory pressure
  79. ROCURONIUM [Concomitant]
     Active Substance: ROCURONIUM BROMIDE
     Indication: Flushing
  80. ROCURONIUM [Concomitant]
     Active Substance: ROCURONIUM BROMIDE
     Indication: Angioedema
  81. ROCURONIUM [Concomitant]
     Active Substance: ROCURONIUM BROMIDE
     Indication: Cyanosis

REACTIONS (1)
  - No adverse event [Unknown]
